FAERS Safety Report 6538013-6 (Version None)
Quarter: 2010Q1

REPORT INFORMATION
  Report Type: 
  Country: None (occurrence: None)
  Receive Date: 20100111
  Receipt Date: 20091221
  Transmission Date: 20100710
  Serious: Yes (Disabling)
  Sender: FDA-Public Use
  Company Number: 2009GR_BP2822

PATIENT
  Age: 45 Year
  Sex: Male

DRUGS (6)
  1. TERBINAFINE HCL [Suspect]
     Indication: FUNGAL SKIN INFECTION
     Dosage: 250 MG (250 MG, 1 IN 1 D) ORAL
     Route: 048
     Dates: start: 20060413, end: 20060525
  2. MOVELAT (MUCOPOLYSACCHARIDE POLYSULFURIC ACID ESTER, SALICYLIC ACID) [Concomitant]
  3. BETAMETHASONE VALERATE [Concomitant]
  4. DAKTACORT (HYDROCORTISONE, MICONAZOLE NITRATE) [Concomitant]
  5. TERBINAFINE HCL [Concomitant]
  6. KETOCONAZOLE (KETCONAZOLE) [Concomitant]

REACTIONS (3)
  - DISTURBANCE IN ATTENTION [None]
  - ROAD TRAFFIC ACCIDENT [None]
  - UNEVALUABLE EVENT [None]
